FAERS Safety Report 16826423 (Version 2)
Quarter: 2019Q4

REPORT INFORMATION
  Report Type: Spontaneous
  Country: US (occurrence: US)
  Receive Date: 20190919
  Receipt Date: 20191007
  Transmission Date: 20200122
  Serious: Yes (Other)
  Sender: FDA-Public Use
  Company Number: US-PFIZER INC-2019401371

PATIENT
  Age: 64 Year
  Sex: Female
  Weight: 102.4 kg

DRUGS (11)
  1. LEVOTHYROXINE. [Concomitant]
     Active Substance: LEVOTHYROXINE
     Dosage: 125 UG, UNK
  2. ALLOPURINOL. [Concomitant]
     Active Substance: ALLOPURINOL
     Dosage: 100 MG, UNK
  3. WELLBUTRIN [Suspect]
     Active Substance: BUPROPION HYDROCHLORIDE
     Indication: BIPOLAR I DISORDER
     Dosage: 150 MG, 1X/DAY
  4. PROBIOTICS [Concomitant]
     Active Substance: PROBIOTICS NOS
     Dosage: UNK
  5. EFFEXOR XR [Suspect]
     Active Substance: VENLAFAXINE HYDROCHLORIDE
     Indication: BIPOLAR I DISORDER
     Dosage: 150 MG, 1X/DAY
  6. ATORVASTATIN CALCIUM ANHYDROUS. [Concomitant]
     Active Substance: ATORVASTATIN CALCIUM ANHYDROUS
     Dosage: 40 MG, UNK
     Dates: start: 2019
  7. POTASSIUM CHLORIDE. [Concomitant]
     Active Substance: POTASSIUM CHLORIDE
     Dosage: 10 UG, UNK
  8. FISH OIL [Concomitant]
     Active Substance: FISH OIL
  9. MELOXICAM. [Concomitant]
     Active Substance: MELOXICAM
     Dosage: 15 MG, UNK
  10. CYCLOBENZAPRINE. [Concomitant]
     Active Substance: CYCLOBENZAPRINE
     Dosage: 10 MG, UNK
  11. VITAMIN D3 [Concomitant]
     Active Substance: CHOLECALCIFEROL
     Dosage: 5000 MG, UNK

REACTIONS (2)
  - Bipolar I disorder [Unknown]
  - Suicidal ideation [Unknown]
